FAERS Safety Report 22751044 (Version 5)
Quarter: 2024Q2

REPORT INFORMATION
  Report Type: Spontaneous
  Country: US (occurrence: US)
  Receive Date: 20230726
  Receipt Date: 20240422
  Transmission Date: 20240716
  Serious: Yes (Other)
  Sender: FDA-Public Use
  Company Number: US-GSK-US2023AMR100439

PATIENT

DRUGS (4)
  1. TRELEGY ELLIPTA [Suspect]
     Active Substance: FLUTICASONE FUROATE\UMECLIDINIUM BROMIDE\VILANTEROL TRIFENATATE
     Indication: Product used for unknown indication
     Dosage: UNK
  2. OFEV [Suspect]
     Active Substance: NINTEDANIB
     Indication: Idiopathic pulmonary fibrosis
     Dosage: 150 MG, BID, 1 IN 12 HRS
     Route: 048
  3. OFEV [Suspect]
     Active Substance: NINTEDANIB
     Dosage: UNK UNK, QD
  4. OFEV [Suspect]
     Active Substance: NINTEDANIB
     Dosage: 150 MG, QD
     Route: 048

REACTIONS (14)
  - Pneumonia [Recovering/Resolving]
  - Diverticulitis [Recovering/Resolving]
  - Nausea [Not Recovered/Not Resolved]
  - Headache [Recovered/Resolved]
  - Diarrhoea [Not Recovered/Not Resolved]
  - Gastrointestinal disorder [Unknown]
  - Abdominal pain upper [Unknown]
  - Memory impairment [Unknown]
  - Respiratory tract congestion [Unknown]
  - Lung disorder [Unknown]
  - Cough [Recovering/Resolving]
  - Dyspnoea [Unknown]
  - Product dose omission issue [Unknown]
  - Product dose omission in error [Unknown]
